FAERS Safety Report 8447988-X (Version None)
Quarter: 2012Q2

REPORT INFORMATION
  Report Type: 
  Country: None (occurrence: None)
  Receive Date: 20120619
  Receipt Date: 20120611
  Transmission Date: 20120825
  Serious: Yes (Other)
  Sender: FDA-Public Use
  Company Number: DE-UCBSA-057211

PATIENT
  Age: 65 Year
  Sex: Female
  Weight: 150 kg

DRUGS (13)
  1. BLOPRESS FORTE [Concomitant]
     Dosage: 32 MG PLUS 25 MG
  2. CITALOPRAM BETA [Concomitant]
  3. VERLA MAG [Concomitant]
  4. KEPPRA [Suspect]
     Dosage: 1000; 1-0-1
     Dates: start: 20120401
  5. AMLODIPINE STADA [Concomitant]
  6. LEVOTHYROXINE SODIUM [Concomitant]
  7. DULOXETINE HYDROCHLORIDE [Concomitant]
  8. CARVEDILOL BETA [Concomitant]
     Dosage: 25; 1-0-1
  9. BERLINSULIN H [Concomitant]
     Dosage: DURING THE DAY NORMAL 3 ML PEN
  10. INSULIN [Concomitant]
  11. FUROSEMIDE [Concomitant]
     Dosage: 40; 1-0-0
  12. OMEPRAZOL STADA [Concomitant]
  13. LEVEMIR [Concomitant]
     Dosage: AT NIGHT

REACTIONS (2)
  - BLOOD GLUCOSE INCREASED [None]
  - WEIGHT INCREASED [None]
